FAERS Safety Report 6418739-5 (Version None)
Quarter: 2009Q4

REPORT INFORMATION
  Report Type: 
  Country: None (occurrence: None)
  Receive Date: 20091026
  Receipt Date: 20091014
  Transmission Date: 20100525
  Serious: Yes (Hospitalization)
  Sender: FDA-Public Use
  Company Number: 2009AC000235

PATIENT
  Age: 80 Year
  Sex: Female

DRUGS (20)
  1. DIGOXIN [Suspect]
     Dosage: 2.5 MG;QD;GT
  2. ASPIRIN [Concomitant]
  3. WELLBURIN [Concomitant]
  4. SYNTHROID [Concomitant]
  5. JANUVIA [Concomitant]
  6. LEVAQUIN [Concomitant]
  7. PLAVIX [Concomitant]
  8. METOPROLOL [Concomitant]
  9. NORVASC [Concomitant]
  10. TYLENOL [Concomitant]
  11. LOVASTATIN [Concomitant]
  12. MAGIC MOUTHWASH [Concomitant]
  13. HYDROCODONE [Concomitant]
  14. INSULIN [Concomitant]
  15. LASIX [Concomitant]
  16. REGLAN [Concomitant]
  17. LISINOPRIL [Concomitant]
  18. CALCIUM OYSTER SHELL [Concomitant]
  19. LACTULOSE [Concomitant]
  20. VITAMIN K TAB [Concomitant]

REACTIONS (29)
  - ANXIETY [None]
  - ARTERIAL INSUFFICIENCY [None]
  - ATRIAL FIBRILLATION [None]
  - BRADYCARDIA [None]
  - COAGULOPATHY [None]
  - DYSPHAGIA [None]
  - ECONOMIC PROBLEM [None]
  - EMOTIONAL DISTRESS [None]
  - HAEMORRHAGE [None]
  - HYPOPHAGIA [None]
  - INTERNATIONAL NORMALISED RATIO INCREASED [None]
  - LIVER FUNCTION TEST ABNORMAL [None]
  - LOCAL SWELLING [None]
  - MALNUTRITION [None]
  - MENTAL STATUS CHANGES [None]
  - MUCOSAL INFLAMMATION [None]
  - MULTIPLE INJURIES [None]
  - NECK PAIN [None]
  - ODYNOPHAGIA [None]
  - OESOPHAGEAL STENOSIS [None]
  - OROPHARYNGEAL PAIN [None]
  - PAIN IN EXTREMITY [None]
  - PERIPHERAL ISCHAEMIA [None]
  - PHARYNGEAL DISORDER [None]
  - SKIN DISCOLOURATION [None]
  - THERAPEUTIC AGENT TOXICITY [None]
  - URINARY TRACT INFECTION [None]
  - VENTRICULAR HYPERTROPHY [None]
  - WEIGHT INCREASED [None]
